FAERS Safety Report 18148304 (Version 1)
Quarter: 2020Q3

REPORT INFORMATION
  Report Type: Spontaneous
  Country: US (occurrence: US)
  Receive Date: 20200813
  Receipt Date: 20200813
  Transmission Date: 20201103
  Serious: No
  Sender: FDA-Public Use
  Company Number: US-JNJFOC-20200812853

PATIENT
  Age: 64 Year

DRUGS (2)
  1. DARZALEX [Suspect]
     Active Substance: DARATUMUMAB
     Route: 042
     Dates: start: 20200717
  2. DARZALEX [Suspect]
     Active Substance: DARATUMUMAB
     Indication: PLASMA CELL MYELOMA
     Route: 042
     Dates: start: 20200716

REACTIONS (4)
  - Headache [Unknown]
  - Infusion related reaction [Unknown]
  - Ocular hyperaemia [Unknown]
  - Flushing [Unknown]

NARRATIVE: CASE EVENT DATE: 20200717
